FAERS Safety Report 4406804-3 (Version None)
Quarter: 2004Q3

REPORT INFORMATION
  Report Type: 
  Country: None (occurrence: None)
  Receive Date: 20040715
  Receipt Date: 20040701
  Transmission Date: 20050211
  Serious: Yes (Other)
  Sender: FDA-Public Use
  Company Number: 207618

PATIENT
  Age: 47 Year
  Sex: Female
  Weight: 58 kg

DRUGS (6)
  1. MABTHERA(RITUXIMAB) CONC FOR SOLUTION FOR INFUSION [Suspect]
     Indication: NON-HODGKIN'S LYMPHOMA
     Dosage: 700 MG, 1/WEEK, INTRAVENOUS
     Route: 042
     Dates: start: 20040501, end: 20040601
  2. MABTHERA(RITUXIMAB) CONC FOR SOLUTION FOR INFUSION [Suspect]
     Indication: NON-HODGKIN'S LYMPHOMA
     Dosage: 700 MG, 1/WEEK, INTRAVENOUS
     Route: 042
     Dates: start: 20030801
  3. CYCLOPHOSPHAMIDE [Concomitant]
  4. VINCRISTINE [Concomitant]
  5. PREDNISONE TAB [Concomitant]
  6. DOXORUBICIN HYDROCHLORIDE [Concomitant]

REACTIONS (2)
  - GANGLION [None]
  - NECROSIS [None]
